FAERS Safety Report 14571730 (Version 1)
Quarter: 2018Q1

REPORT INFORMATION
  Report Type: Spontaneous
  Country: US (occurrence: US)
  Receive Date: 20180223
  Receipt Date: 20180223
  Transmission Date: 20180509
  Serious: Yes (Hospitalization)
  Sender: FDA-Public Use
  Company Number: None

PATIENT
  Age: 60 Year
  Sex: Male
  Weight: 72.12 kg

DRUGS (19)
  1. CARVEDILOL. [Concomitant]
     Active Substance: CARVEDILOL
  2. MIRTAZAPINE. [Concomitant]
     Active Substance: MIRTAZAPINE
  3. ACETAMINOPHEN. [Concomitant]
     Active Substance: ACETAMINOPHEN
  4. HYDRALAZINE [Concomitant]
     Active Substance: HYDRALAZINE HYDROCHLORIDE
  5. SOFOSBUVIR-VELPATASIR 400-100MG [Suspect]
     Active Substance: SOFOSBUVIR\VELPATASVIR
     Indication: HEPATITIS C
     Route: 048
     Dates: start: 20170810, end: 20180125
  6. AMLODIPINE [Concomitant]
     Active Substance: AMLODIPINE BESYLATE
  7. LACTULOSE. [Concomitant]
     Active Substance: LACTULOSE
  8. DOCUSATE SODIUM. [Concomitant]
     Active Substance: DOCUSATE SODIUM
  9. FLUTICASONE. [Concomitant]
     Active Substance: FLUTICASONE
  10. LIDOCAINE. [Concomitant]
     Active Substance: LIDOCAINE
  11. PSYLLIUM HUSK. [Concomitant]
     Active Substance: PSYLLIUM HUSK
  12. TRAMADOL. [Concomitant]
     Active Substance: TRAMADOL
  13. BISACODYL. [Concomitant]
     Active Substance: BISACODYL
  14. ASPIRIN. [Concomitant]
     Active Substance: ASPIRIN
  15. ATORVASTATIN [Concomitant]
     Active Substance: ATORVASTATIN
  16. FERROUS SULFATE. [Concomitant]
     Active Substance: FERROUS SULFATE
  17. SENNA [Concomitant]
     Active Substance: SENNA LEAF\SENNOSIDES\SENNOSIDES A AND B
  18. TRAZODONE [Concomitant]
     Active Substance: TRAZODONE HYDROCHLORIDE
  19. CLARITIN [Concomitant]
     Active Substance: LORATADINE

REACTIONS (9)
  - Chronic kidney disease [None]
  - End stage renal disease [None]
  - Ascites [None]
  - Coronary artery disease [None]
  - Upper gastrointestinal haemorrhage [None]
  - Dyspnoea [None]
  - Anaemia [None]
  - Pleural effusion [None]
  - Hypertension [None]

NARRATIVE: CASE EVENT DATE: 20171130
